FAERS Safety Report 9632394 (Version 1)
Quarter: 2013Q4

REPORT INFORMATION
  Report Type: Spontaneous
  Country: US (occurrence: None)
  Receive Date: 20131018
  Receipt Date: 20131018
  Transmission Date: 20140711
  Serious: No
  Sender: FDA-Public Use
  Company Number: None

PATIENT
  Age: 67 Year
  Sex: Female
  Weight: 63.5 kg

DRUGS (1)
  1. DEXILANT [Suspect]
     Indication: GASTROOESOPHAGEAL REFLUX DISEASE
     Dosage: 1; ONCE DAILY; TAKEN BY MOUTH
     Route: 048
     Dates: start: 20130611, end: 20131014

REACTIONS (3)
  - Diarrhoea [None]
  - Muscle spasms [None]
  - Nausea [None]
